FAERS Safety Report 11192252 (Version 2)
Quarter: 2015Q2

REPORT INFORMATION
  Report Type: Other
  Country: GB (occurrence: GB)
  Receive Date: 20150616
  Receipt Date: 20150630
  Transmission Date: 20150821
  Serious: Yes (Hospitalization)
  Sender: FDA-Public Use
  Company Number: GB-ASTELLAS-2015EU006820

PATIENT
  Sex: Female

DRUGS (2)
  1. ADVAGRAF [Suspect]
     Active Substance: TACROLIMUS
     Indication: PRODUCT USED FOR UNKNOWN INDICATION
     Route: 065
  2. WARFARIN [Concomitant]
     Active Substance: WARFARIN
     Indication: PRODUCT USED FOR UNKNOWN INDICATION
     Dosage: UNK UNK, UNKNOWN FREQ.
     Route: 065

REACTIONS (2)
  - Haematoma [Unknown]
  - Fall [Unknown]
